FAERS Safety Report 14185436 (Version 1)
Quarter: 2017Q4

REPORT INFORMATION
  Report Type: Spontaneous
  Country: FR (occurrence: FR)
  Receive Date: 20171113
  Receipt Date: 20171113
  Transmission Date: 20180321
  Serious: Yes (Other)
  Sender: FDA-Public Use
  Company Number: FR-MERCK KGAA-2033939

PATIENT
  Sex: Female

DRUGS (3)
  1. NOVOTHYROX [Suspect]
     Active Substance: LEVOTHYROXINE SODIUM
     Indication: PRODUCT USED FOR UNKNOWN INDICATION
     Dates: start: 201705
  2. NOVOTHYROX [Suspect]
     Active Substance: LEVOTHYROXINE SODIUM
     Dates: start: 2017
  3. NOVOTHYROX [Suspect]
     Active Substance: LEVOTHYROXINE SODIUM
     Dates: start: 2017

REACTIONS (9)
  - Somnolence [None]
  - Blood thyroid stimulating hormone decreased [None]
  - Vertigo [None]
  - Thyroxine increased [None]
  - Irritability [None]
  - Fatigue [None]
  - Tri-iodothyronine increased [None]
  - Poor quality sleep [None]
  - Nausea [Recovered/Resolved]

NARRATIVE: CASE EVENT DATE: 2017
